FAERS Safety Report 5532392-4 (Version None)
Quarter: 2007Q4

REPORT INFORMATION
  Report Type: 
  Country: None (occurrence: None)
  Receive Date: 20071203
  Receipt Date: 20071122
  Transmission Date: 20080405
  Serious: Yes (Hospitalization, Other)
  Sender: FDA-Public Use
  Company Number: SY-GENENTECH-251227

PATIENT
  Sex: Male

DRUGS (3)
  1. MABTHERA [Suspect]
     Indication: WALDENSTROM'S MACROGLOBULINAEMIA
     Dates: start: 20070901
  2. BLOOD TRANSFUSION [Concomitant]
     Indication: GASTROINTESTINAL HAEMORRHAGE
     Dosage: 12 UNK, UNK
  3. VINCRISTINE [Suspect]

REACTIONS (1)
  - ENCEPHALOPATHY [None]
